FAERS Safety Report 4680298-5 (Version None)
Quarter: 2005Q2

REPORT INFORMATION
  Report Type: 
  Country: None (occurrence: None)
  Receive Date: 20050601
  Receipt Date: 20050525
  Transmission Date: 20051028
  Serious: Yes (Hospitalization)
  Sender: FDA-Public Use
  Company Number: 200510233BYL

PATIENT
  Age: 78 Year
  Sex: Male
  Weight: 49.7 kg

DRUGS (9)
  1. CIPROFLOXACIN HYDROCHLORIDE [Suspect]
     Indication: UPPER RESPIRATORY TRACT INFLAMMATION
     Dosage: 200 MG, BID, ORAL
     Route: 048
     Dates: start: 20050414
  2. SYOSEIRYUTO [Suspect]
     Indication: UPPER RESPIRATORY TRACT INFLAMMATION
     Dosage: 2.5 G, BID, ORAL
     Route: 048
     Dates: start: 20050414
  3. NOLEPTAN [Concomitant]
  4. BIOFERMIN R [Concomitant]
  5. HARNAL [Concomitant]
  6. LENDORM [Concomitant]
  7. SELBEX [Concomitant]
  8. MUCOSOLVAN [Concomitant]
  9. PRORENAL [Concomitant]

REACTIONS (2)
  - DRUG INEFFECTIVE [None]
  - RHABDOMYOLYSIS [None]
